FAERS Safety Report 13265606 (Version 1)
Quarter: 2017Q1

REPORT INFORMATION
  Report Type: Spontaneous
  Country: US (occurrence: US)
  Receive Date: 20170223
  Receipt Date: 20170223
  Transmission Date: 20170428
  Serious: Yes (Other)
  Sender: FDA-Public Use
  Company Number: US-SAOL THERAPEUTICS-2017SAO00341

PATIENT
  Age: 14 Year
  Sex: Male
  Weight: 30 kg

DRUGS (1)
  1. LIORESAL [Suspect]
     Active Substance: BACLOFEN
     Indication: CEREBRAL PALSY
     Dosage: 300 ?G, \DAY
     Route: 037

REACTIONS (2)
  - Spinal deformity [Unknown]
  - Medical device site erosion [Unknown]

NARRATIVE: CASE EVENT DATE: 20170215
